FAERS Safety Report 7915884-X (Version None)
Quarter: 2011Q4

REPORT INFORMATION
  Report Type: 
  Country: None (occurrence: None)
  Receive Date: 20111115
  Receipt Date: 20111112
  Transmission Date: 20120403
  Serious: Yes (Other)
  Sender: FDA-Public Use
  Company Number: CA-PFIZER INC-2011247633

PATIENT
  Age: 31 Year
  Sex: Male
  Weight: 70 kg

DRUGS (1)
  1. VARENICLINE TARTRATE [Suspect]
     Indication: SMOKING CESSATION THERAPY
     Dosage: 1 MG, 2X/DAY
     Route: 048
     Dates: start: 20110908, end: 20111010

REACTIONS (9)
  - LETHARGY [None]
  - ASTHENIA [None]
  - APHASIA [None]
  - SENSORY LOSS [None]
  - PRODUCTIVE COUGH [None]
  - HYPOVENTILATION [None]
  - HYPERHIDROSIS [None]
  - PALPITATIONS [None]
  - CONFUSIONAL STATE [None]
